FAERS Safety Report 5385538-5 (Version None)
Quarter: 2007Q3

REPORT INFORMATION
  Report Type: 
  Country: None (occurrence: None)
  Receive Date: 20070712
  Receipt Date: 20070705
  Transmission Date: 20080115
  Serious: Yes (Life-Threatening, Hospitalization, Disabling)
  Sender: FDA-Public Use
  Company Number: B0428381A

PATIENT
  Age: 58 Year
  Sex: Male
  Weight: 66 kg

DRUGS (13)
  1. LAMIVUDINE [Suspect]
     Indication: HEPATITIS B
     Dosage: 100MG PER DAY
     Route: 048
     Dates: start: 20060511
  2. ALTAT [Concomitant]
     Indication: GASTRITIS
     Dosage: 75MG TWICE PER DAY
     Route: 048
     Dates: end: 20060608
  3. PROMAC [Concomitant]
     Indication: GASTRITIS
     Dosage: .5MG TWICE PER DAY
     Route: 048
     Dates: end: 20060608
  4. ZANTAC [Concomitant]
     Indication: GASTRITIS
     Dosage: 75MG TWICE PER DAY
     Route: 048
     Dates: start: 20060615, end: 20060616
  5. LANSOPRAZOLE [Concomitant]
     Indication: GASTRITIS
     Dosage: 15MG PER DAY
     Route: 048
     Dates: start: 20060616
  6. LOXONIN [Concomitant]
     Indication: CANCER PAIN
     Dosage: 0MG THREE TIMES PER DAY
     Route: 048
     Dates: start: 20060612, end: 20060619
  7. OXYCONTIN [Concomitant]
     Indication: CANCER PAIN
     Route: 048
     Dates: start: 20060620, end: 20060627
  8. FENTANYL [Concomitant]
     Indication: CANCER PAIN
     Dosage: 2.5MG PER DAY
     Route: 061
     Dates: start: 20060628
  9. URSO 250 [Concomitant]
     Indication: HEPATITIS
     Dosage: 100MG THREE TIMES PER DAY
     Route: 048
     Dates: start: 20060616
  10. TAURINE [Concomitant]
     Indication: HEPATITIS
     Dosage: 1.02G THREE TIMES PER DAY
     Route: 048
     Dates: start: 20060616
  11. LIVACT [Concomitant]
     Indication: HEPATIC CIRRHOSIS
     Dosage: 4.15G THREE TIMES PER DAY
     Route: 048
     Dates: start: 20060623
  12. GASMOTIN [Concomitant]
     Indication: CONSTIPATION
     Dosage: 5MG THREE TIMES PER DAY
     Route: 048
     Dates: start: 20060629
  13. PURSENNID [Concomitant]
     Indication: CONSTIPATION
     Dosage: 12MG PER DAY
     Route: 048
     Dates: start: 20060629

REACTIONS (2)
  - ABDOMINAL PAIN UPPER [None]
  - HEPATIC NEOPLASM MALIGNANT [None]
